FAERS Safety Report 11133896 (Version 2)
Quarter: 2015Q3

REPORT INFORMATION
  Report Type: Spontaneous
  Country: US (occurrence: US)
  Receive Date: 20150524
  Receipt Date: 20150812
  Transmission Date: 20151125
  Serious: No
  Sender: FDA-Public Use
  Company Number: US-JNJFOC-20140827527

PATIENT
  Sex: Male
  Weight: 72.9 kg

DRUGS (1)
  1. INVOKANA [Suspect]
     Active Substance: CANAGLIFLOZIN
     Indication: DIABETES MELLITUS
     Route: 048
     Dates: start: 20140415, end: 20140610

REACTIONS (2)
  - Arthralgia [Recovered/Resolved]
  - Rash [Recovered/Resolved]
